FAERS Safety Report 22620228 (Version 1)
Quarter: 2023Q2

REPORT INFORMATION
  Report Type: Other
  Country: None (occurrence: JP)
  Receive Date: 20230620
  Receipt Date: 20230620
  Transmission Date: 20230721
  Serious: Yes (Life-Threatening)
  Sender: FDA-Public Use
  Company Number: JP-B.Braun Medical Inc.-2142900

PATIENT
  Age: 71 Year
  Sex: Male

DRUGS (7)
  1. CEFAZOLIN [Suspect]
     Active Substance: CEFAZOLIN
     Indication: Infection
  2. DEXAMETHASONE [Concomitant]
     Active Substance: DEXAMETHASONE
  3. REMDESIVIR [Concomitant]
     Active Substance: REMDESIVIR
  4. HEPARIN [Concomitant]
     Active Substance: HEPARIN SODIUM
  5. PIPERACILLIN AND TAZOBACTAM [Suspect]
     Active Substance: PIPERACILLIN SODIUM\TAZOBACTAM SODIUM
  6. VANCOMYCIN [Suspect]
     Active Substance: VANCOMYCIN
  7. MEROPENEM [Suspect]
     Active Substance: MEROPENEM

REACTIONS (1)
  - Drug ineffective [Unknown]
